FAERS Safety Report 23586584 (Version 1)
Quarter: 2024Q1

REPORT INFORMATION
  Report Type: Spontaneous
  Country: US (occurrence: US)
  Receive Date: 20240301
  Receipt Date: 20240301
  Transmission Date: 20240409
  Serious: No
  Sender: FDA-Public Use
  Company Number: US-Merck Healthcare KGaA-2024010648

PATIENT
  Age: 51 Year
  Sex: Female

DRUGS (2)
  1. MAVENCLAD [Suspect]
     Active Substance: CLADRIBINE
     Indication: Multiple sclerosis
     Dosage: YEAR ONE THERAPY
     Route: 048
     Dates: start: 20221118
  2. MAVENCLAD [Suspect]
     Active Substance: CLADRIBINE
     Dosage: YEAR TWO-CYCLE ONE THERAPY
     Route: 048

REACTIONS (1)
  - Stomatitis [Recovered/Resolved]

NARRATIVE: CASE EVENT DATE: 20240129
